FAERS Safety Report 16366935 (Version 1)
Quarter: 2019Q2

REPORT INFORMATION
  Report Type: Spontaneous
  Country: US (occurrence: US)
  Receive Date: 20190529
  Receipt Date: 20190529
  Transmission Date: 20190711
  Serious: Yes (Other)
  Sender: FDA-Public Use
  Company Number: US-SA-2019SA147217

PATIENT
  Age: 50 Year
  Sex: Male

DRUGS (4)
  1. METHYLPREDNISOLONE. [Concomitant]
     Active Substance: METHYLPREDNISOLONE
  2. DUPIXENT [Suspect]
     Active Substance: DUPILUMAB
     Indication: DERMATITIS ATOPIC
     Dosage: 300 MG, QOW
     Route: 058
     Dates: start: 20190216
  3. LISINOPRIL. [Concomitant]
     Active Substance: LISINOPRIL
  4. CHLORDIAZEPOXIDE;CLIDINIUM [Concomitant]

REACTIONS (2)
  - Diverticulitis [Not Recovered/Not Resolved]
  - Dermatitis [Not Recovered/Not Resolved]
